FAERS Safety Report 13669388 (Version 2)
Quarter: 2017Q3

REPORT INFORMATION
  Report Type: Report from Study
  Country: CA (occurrence: CA)
  Receive Date: 20170620
  Receipt Date: 20170725
  Transmission Date: 20171127
  Serious: Yes (Hospitalization, Other)
  Sender: FDA-Public Use
  Company Number: CA-TAKEDA-2017MPI005142

PATIENT
  Age: 66 Year
  Sex: Male
  Weight: 91.2 kg

DRUGS (4)
  1. IXAZOMIB [Suspect]
     Active Substance: IXAZOMIB
     Indication: PLASMA CELL MYELOMA
     Dosage: 3 MG, 1/WEEK
     Route: 048
     Dates: start: 20170526, end: 201706
  2. DULOXETINE. [Concomitant]
     Active Substance: DULOXETINE
  3. DEXAMETHASONE. [Suspect]
     Active Substance: DEXAMETHASONE
     Indication: PLASMA CELL MYELOMA
     Dosage: 20 MG, 1/WEEK
     Route: 048
     Dates: start: 201705, end: 201706
  4. HYDROMORPHONE [Concomitant]
     Active Substance: HYDROMORPHONE

REACTIONS (10)
  - Staring [Unknown]
  - Delirium [Recovered/Resolved]
  - Hypersomnia [Unknown]
  - Abdominal pain upper [Recovered/Resolved]
  - Daydreaming [Unknown]
  - Fall [Recovered/Resolved]
  - Klebsiella sepsis [Recovered/Resolved]
  - Fatigue [Unknown]
  - Feeling abnormal [Unknown]
  - Off label use [Unknown]

NARRATIVE: CASE EVENT DATE: 20170526
